FAERS Safety Report 14304900 (Version 1)
Quarter: 2017Q4

REPORT INFORMATION
  Report Type: Spontaneous
  Country: JP (occurrence: JP)
  Receive Date: 20171219
  Receipt Date: 20171219
  Transmission Date: 20180321
  Serious: Yes (Other)
  Sender: FDA-Public Use
  Company Number: JP-OTSUKA-03100-JPN-07-0057

PATIENT
  Age: 68 Year
  Sex: Male

DRUGS (10)
  1. FORIT [Concomitant]
     Active Substance: OXYPERTINE
     Dosage: 80 MG, BID
     Route: 048
     Dates: start: 20061116, end: 20061205
  2. FORIT [Concomitant]
     Active Substance: OXYPERTINE
     Dosage: 40 MG, BID
     Route: 048
     Dates: start: 20061206, end: 20070116
  3. MAGNESIUM OXIDE. [Concomitant]
     Active Substance: MAGNESIUM OXIDE
     Dosage: 1 G, BID
     Route: 048
     Dates: start: 20061116
  4. ABILIFY [Suspect]
     Active Substance: ARIPIPRAZOLE
     Dosage: 6 MG, QD
     Route: 048
     Dates: start: 20061116, end: 20061122
  5. ABILIFY [Suspect]
     Active Substance: ARIPIPRAZOLE
     Dosage: 12 MG, QD
     Route: 048
     Dates: start: 20061123, end: 20061129
  6. CHLORPROMAZINE. [Suspect]
     Active Substance: CHLORPROMAZINE
     Indication: SCHIZOPHRENIA
  7. ABILIFY [Suspect]
     Active Substance: ARIPIPRAZOLE
     Dosage: 18 MG, QD
     Route: 048
     Dates: start: 20061130
  8. CONTOMIN [Suspect]
     Active Substance: CHLORPROMAZINE
     Dosage: 110 MG, TID
     Route: 048
     Dates: start: 20061116
  9. CHLORPROMAZINE. [Suspect]
     Active Substance: CHLORPROMAZINE
     Indication: PREMEDICATION
     Dosage: 330 MG, QD
     Route: 048
     Dates: start: 20061116
  10. LENDORMIN [Concomitant]
     Active Substance: BROTIZOLAM
     Dosage: 0.25 MG, QD
     Route: 048
     Dates: start: 20061116

REACTIONS (1)
  - Generalised tonic-clonic seizure [Recovered/Resolved]

NARRATIVE: CASE EVENT DATE: 20070125
